FAERS Safety Report 9552299 (Version 1)
Quarter: 2013Q3

REPORT INFORMATION
  Report Type: Spontaneous
  Country: US (occurrence: None)
  Receive Date: 20130924
  Receipt Date: 20130924
  Transmission Date: 20140515
  Serious: Yes (Other)
  Sender: FDA-Public Use
  Company Number: None

PATIENT
  Age: 81 Year
  Sex: Male
  Weight: 75.75 kg

DRUGS (2)
  1. POTASSIUM [Suspect]
     Dosage: 1 TABLET
     Route: 048
  2. RANITIDINE [Suspect]
     Dosage: 1 TABLET
     Route: 048

REACTIONS (2)
  - Product quality issue [None]
  - Product physical issue [None]
